FAERS Safety Report 24683289 (Version 1)
Quarter: 2024Q4

REPORT INFORMATION
  Report Type: Spontaneous
  Country: GB (occurrence: GB)
  Receive Date: 20241201
  Receipt Date: 20241201
  Transmission Date: 20250115
  Serious: Yes (Other)
  Sender: JOHNSON AND JOHNSON
  Company Number: None

PATIENT
  Age: 6 Year
  Sex: Female

DRUGS (1)
  1. VERMOX [Suspect]
     Active Substance: MEBENDAZOLE
     Indication: Enterobiasis
     Route: 065
     Dates: start: 20241119

REACTIONS (1)
  - Discoloured vomit [Recovering/Resolving]

NARRATIVE: CASE EVENT DATE: 20241123
